FAERS Safety Report 12771654 (Version 1)
Quarter: 2016Q3

REPORT INFORMATION
  Report Type: Spontaneous
  Country: PL (occurrence: PL)
  Receive Date: 20160922
  Receipt Date: 20160922
  Transmission Date: 20161109
  Serious: Yes (Other)
  Sender: FDA-Public Use
  Company Number: PL-ARIAD PHARMACEUTICALS, INC-2016PL006990

PATIENT
  Age: 62 Year
  Sex: Female

DRUGS (3)
  1. ICLUSIG [Suspect]
     Active Substance: PONATINIB
     Dosage: 22.5 MG, QD
     Route: 048
     Dates: start: 201604
  2. ICLUSIG [Suspect]
     Active Substance: PONATINIB
     Indication: BLAST CRISIS IN MYELOGENOUS LEUKAEMIA
     Dosage: 45 MG, QD
     Route: 048
     Dates: start: 20160311
  3. ICLUSIG [Suspect]
     Active Substance: PONATINIB
     Dosage: 15 MG, QD
     Route: 048
     Dates: start: 20160606

REACTIONS (4)
  - Stem cell transplant [Recovered/Resolved]
  - Thrombocytopenia [Unknown]
  - Lipase increased [Unknown]
  - Neutropenia [Unknown]

NARRATIVE: CASE EVENT DATE: 20160819
